FAERS Safety Report 21738890 (Version 1)
Quarter: 2022Q4

REPORT INFORMATION
  Report Type: Report from Study
  Country: US (occurrence: US)
  Receive Date: 20221216
  Receipt Date: 20221216
  Transmission Date: 20230113
  Serious: Yes (Other)
  Sender: FDA-Public Use
  Company Number: US-ABBVIE-4237967

PATIENT
  Age: 66 Year
  Sex: Female

DRUGS (1)
  1. HUMIRA [Suspect]
     Active Substance: ADALIMUMAB
     Indication: Rheumatoid arthritis
     Route: 058

REACTIONS (4)
  - Dizziness [Unknown]
  - Urinary tract infection [Recovered/Resolved]
  - Thyroid function test abnormal [Recovering/Resolving]
  - Back disorder [Unknown]

NARRATIVE: CASE EVENT DATE: 20221201
